FAERS Safety Report 5822397-8 (Version None)
Quarter: 2008Q3

REPORT INFORMATION
  Report Type: 
  Country: None (occurrence: None)
  Receive Date: 20080725
  Receipt Date: 20080716
  Transmission Date: 20090109
  Serious: Yes (Death, Other)
  Sender: FDA-Public Use
  Company Number: AU-ROCHE-539154

PATIENT
  Age: 39 Year
  Sex: Male

DRUGS (10)
  1. MYCOPHENOLATE MOFETIL [Suspect]
     Indication: IMMUNOSUPPRESSION
     Dosage: INDICATION: IMMUNOSUPPRESSION FOR CROHN'S DISEASE,PROPHYLASIS AFTER PERIPHERAL STEM CELL ALLOGRAFT.
     Route: 065
  2. PROGRAF [Suspect]
     Route: 065
  3. CYCLOSPORINE [Suspect]
     Dosage: DISCONTINUED ON DAY 35 POST TRANSPLANT.
     Route: 065
  4. CYCLOSPORINE [Suspect]
     Dosage: REINTRODUCED ON DAY 43.
     Route: 065
  5. PREDNISOLONE [Suspect]
     Dosage: DISCONTINUED ON DAY 35 POST-TRANSPLANT.
     Route: 065
  6. METHYLPREDNISOLONE [Suspect]
     Indication: DRUG USE FOR UNKNOWN INDICATION
     Route: 065
  7. ETANERCEPT [Suspect]
     Indication: DRUG USE FOR UNKNOWN INDICATION
     Route: 065
  8. IFOSFAMIDE [Concomitant]
  9. CARBOPLATIN [Concomitant]
  10. ETOPOSIDE [Concomitant]

REACTIONS (15)
  - BLOOD LACTATE DEHYDROGENASE INCREASED [None]
  - GRAFT VERSUS HOST DISEASE [None]
  - HEPATOSPLENOMEGALY [None]
  - LETHARGY [None]
  - LUNG INFILTRATION [None]
  - MECHANICAL ILEUS [None]
  - MUCOSAL INFLAMMATION [None]
  - PANCYTOPENIA [None]
  - PSEUDOMONAS INFECTION [None]
  - PYREXIA [None]
  - RENAL FAILURE [None]
  - RESPIRATORY DISTRESS [None]
  - SPLENOMEGALY [None]
  - STAPHYLOCOCCAL SEPSIS [None]
  - T-CELL LYMPHOMA RECURRENT [None]
